FAERS Safety Report 16875483 (Version 1)
Quarter: 2019Q4

REPORT INFORMATION
  Report Type: Spontaneous
  Country: TW (occurrence: TW)
  Receive Date: 20191002
  Receipt Date: 20191002
  Transmission Date: 20200122
  Serious: Yes (Hospitalization)
  Sender: FDA-Public Use
  Company Number: TW-AMGEN-TWNSP2019160583

PATIENT
  Age: 54 Year
  Sex: Male

DRUGS (1)
  1. ENBREL [Suspect]
     Active Substance: ETANERCEPT
     Indication: RHEUMATOID ARTHRITIS
     Dosage: 25 MILLIGRAM, 2 TIMES/WK
     Route: 058
     Dates: start: 20161017

REACTIONS (1)
  - Lower limb fracture [Recovering/Resolving]
